FAERS Safety Report 10920733 (Version 1)
Quarter: 2015Q1

REPORT INFORMATION
  Report Type: Spontaneous
  Country: US (occurrence: US)
  Receive Date: 20150317
  Receipt Date: 20150317
  Transmission Date: 20150721
  Serious: Yes (Other)
  Sender: FDA-Public Use
  Company Number: US-JNJFOC-20150308040

PATIENT
  Sex: Female

DRUGS (2)
  1. REMICADE [Suspect]
     Active Substance: INFLIXIMAB
     Indication: PRODUCT USED FOR UNKNOWN INDICATION
     Route: 042
  2. HUMIRA [Suspect]
     Active Substance: ADALIMUMAB
     Indication: CROHN^S DISEASE
     Dosage: SHE HAD 2 DOSES/4 INJECTIONS OR 5 DOSES OF HUMIRA (ADALIMUMAB) (THE PATIENT WAS NOT SURE).
     Route: 065

REACTIONS (3)
  - Injection site pain [Unknown]
  - Hypersensitivity [Unknown]
  - Ileocolectomy [Recovered/Resolved]
